FAERS Safety Report 14111114 (Version 1)
Quarter: 2017Q4

REPORT INFORMATION
  Report Type: Spontaneous
  Country: NL (occurrence: NL)
  Receive Date: 20171020
  Receipt Date: 20171020
  Transmission Date: 20180321
  Serious: Yes (Other)
  Sender: FDA-Public Use
  Company Number: NL-TEVA-818143ROM

PATIENT
  Age: 66 Year
  Sex: Female
  Weight: 66 kg

DRUGS (2)
  1. MAGNESIUM [Concomitant]
     Active Substance: MAGNESIUM
     Route: 065
  2. DIAZEPAM 2 MG TABLET [Suspect]
     Active Substance: DIAZEPAM
     Indication: HYPOTONIA
     Dosage: 2 MILLIGRAM DAILY;
     Route: 048
     Dates: start: 20170919, end: 20170919

REACTIONS (2)
  - Respiratory tract irritation [Recovered/Resolved]
  - Angioedema [Recovered/Resolved]

NARRATIVE: CASE EVENT DATE: 20170919
